FAERS Safety Report 16716195 (Version 2)
Quarter: 2019Q3

REPORT INFORMATION
  Report Type: Spontaneous
  Country: IT (occurrence: IT)
  Receive Date: 20190819
  Receipt Date: 20190919
  Transmission Date: 20191005
  Serious: Yes (Hospitalization)
  Sender: FDA-Public Use
  Company Number: IT-PFIZER INC-2019348849

PATIENT
  Age: 72 Year
  Sex: Male

DRUGS (10)
  1. FENTANYL CITRATE. [Suspect]
     Active Substance: FENTANYL CITRATE
     Indication: ANALGESIC THERAPY
     Dosage: 100 UG, TOTAL
     Route: 042
     Dates: start: 20190730, end: 20190730
  2. ALLOPURINOL. [Concomitant]
     Active Substance: ALLOPURINOL
     Indication: CALCIUM METABOLISM DISORDER
     Dosage: 100 MG, UNK
     Dates: start: 20160101
  3. ELIQUIS [Concomitant]
     Active Substance: APIXABAN
     Indication: THROMBOSIS PROPHYLAXIS
     Dosage: 2 DF, UNK
     Route: 048
     Dates: end: 20190728
  4. FINASTERIDE. [Concomitant]
     Active Substance: FINASTERIDE
     Dosage: 5 MG, UNK
     Dates: start: 20170101
  5. MEPIVACAINA [MEPIVACAINE] [Concomitant]
     Indication: LOCAL ANAESTHESIA
     Dosage: 10 ML, UNK
     Dates: start: 20190730, end: 20190730
  6. CLINDAMYCIN. [Concomitant]
     Active Substance: CLINDAMYCIN
     Indication: PROPHYLAXIS
     Dosage: 600 MG, TOTAL
     Route: 042
     Dates: start: 20190730, end: 20190730
  7. CONGESCOR [Concomitant]
     Active Substance: BISOPROLOL
     Indication: CARDIOMYOPATHY
     Dosage: 5 MG, UNK
     Route: 048
     Dates: start: 20170101
  8. ROPIVACAINA [ROPIVACAINE] [Concomitant]
     Indication: LOCAL ANAESTHESIA
     Dosage: 10 ML, UNK
     Dates: start: 20190730, end: 20190730
  9. DEXDOR [Suspect]
     Active Substance: DEXMEDETOMIDINE HYDROCHLORIDE
     Indication: SEDATION
     Dosage: 20 UG, TOTAL
     Route: 042
     Dates: start: 20190730, end: 20190730
  10. ENOXAPARIN SODIUM. [Concomitant]
     Active Substance: ENOXAPARIN SODIUM
     Dosage: 2 DF, UNK
     Route: 058
     Dates: start: 20190729, end: 20190729

REACTIONS (1)
  - Hypotension [Recovered/Resolved]

NARRATIVE: CASE EVENT DATE: 20190730
